FAERS Safety Report 6600856-8 (Version None)
Quarter: 2010Q1

REPORT INFORMATION
  Report Type: 
  Country: None (occurrence: None)
  Receive Date: 20100223
  Receipt Date: 20100223
  Transmission Date: 20100710
  Serious: Yes (Hospitalization)
  Sender: FDA-Public Use
  Company Number: None

PATIENT
  Sex: Female
  Weight: 72.5755 kg

DRUGS (2)
  1. LEVOTHYROXINE SODIUM [Suspect]
     Indication: THYROID DISORDER
     Dosage: 75 MCG 1 DAILY
     Dates: start: 20090827, end: 20090908
  2. LEVOTHYROXINE SODIUM [Suspect]
     Indication: THYROID DISORDER
     Dosage: 75 MCG 1 DAILY
     Dates: start: 20091121, end: 20091211

REACTIONS (4)
  - ASTHENIA [None]
  - DIZZINESS [None]
  - HYPERTENSION [None]
  - PRODUCT SUBSTITUTION ISSUE [None]
